FAERS Safety Report 7767213-2 (Version None)
Quarter: 2011Q3

REPORT INFORMATION
  Report Type: 
  Country: None (occurrence: None)
  Receive Date: 20110922
  Receipt Date: 20100805
  Transmission Date: 20111222
  Serious: No
  Sender: FDA-Public Use
  Company Number: GB-ASTRAZENECA-2010SE36767

PATIENT
  Age: 50 Year
  Sex: Female
  Weight: 99.8 kg

DRUGS (8)
  1. LISINOPRIL [Concomitant]
  2. SEROQUEL [Suspect]
     Indication: MIGRAINE
     Route: 048
     Dates: start: 20040101, end: 20100201
  3. LIPITOR [Concomitant]
  4. SEROQUEL [Suspect]
     Route: 048
     Dates: start: 20100201
  5. NASONEX [Concomitant]
  6. ASPIRIN [Concomitant]
  7. ADVAIR DISKUS 100/50 [Concomitant]
  8. HYDROCHLOROT [Concomitant]

REACTIONS (3)
  - THERAPEUTIC RESPONSE UNEXPECTED [None]
  - INSOMNIA [None]
  - HYPERSOMNIA [None]
